FAERS Safety Report 8345992-3 (Version None)
Quarter: 2012Q2

REPORT INFORMATION
  Report Type: 
  Country: None (occurrence: None)
  Receive Date: 20120509
  Receipt Date: 20120507
  Transmission Date: 20120825
  Serious: No
  Sender: FDA-Public Use
  Company Number: US-PFIZER INC-2012111558

PATIENT
  Sex: Male
  Weight: 107 kg

DRUGS (2)
  1. LORAZEPAM [Concomitant]
     Indication: SLEEP DISORDER
     Dosage: UNK, AS NEEDED
  2. LYRICA [Suspect]
     Indication: NEURALGIA
     Dosage: 75 MG, THREE TO FOUR TIMES A DAY
     Route: 048
     Dates: start: 20080101

REACTIONS (2)
  - DRUG ADMINISTRATION ERROR [None]
  - WEIGHT DECREASED [None]
